FAERS Safety Report 9766252 (Version 1)
Quarter: 2013Q4

REPORT INFORMATION
  Report Type: Spontaneous
  Country: US (occurrence: US)
  Receive Date: 20131217
  Receipt Date: 20131217
  Transmission Date: 20140711
  Serious: No
  Sender: FDA-Public Use
  Company Number: US-BAYER-2013-150573

PATIENT
  Age: 30 Year
  Sex: Female
  Weight: 86.17 kg

DRUGS (4)
  1. ALEVE CAPLET [Suspect]
     Indication: JOINT DISLOCATION
     Dosage: 1-2 DF, QD DAILY
     Dates: start: 2002
  2. ALEVE CAPLET [Suspect]
     Indication: LIGAMENT RUPTURE
  3. DARVOCET [Concomitant]
  4. CODEINE [Concomitant]

REACTIONS (2)
  - Off label use [None]
  - Incorrect drug administration duration [None]
